FAERS Safety Report 7053474-4 (Version None)
Quarter: 2010Q4

REPORT INFORMATION
  Report Type: 
  Country: None (occurrence: None)
  Receive Date: 20101020
  Receipt Date: 20101013
  Transmission Date: 20110411
  Serious: No
  Sender: FDA-Public Use
  Company Number: US-PFIZER INC-2010092718

PATIENT
  Sex: Female
  Weight: 90.249 kg

DRUGS (26)
  1. CHANTIX [Suspect]
     Indication: SMOKING CESSATION THERAPY
     Dosage: 0.5 MG, DAILY
     Route: 048
     Dates: start: 20100701
  2. GABAPENTIN [Concomitant]
     Indication: NEURALGIA
     Dosage: 600 MG HALF IN THE MORNING AND ONE IN THE NIGHT
     Route: 048
  3. HYDROXYZINE [Concomitant]
     Indication: ANXIETY
     Dosage: 25 MG, 3X/DAY
     Route: 048
  4. HYDROXYZINE [Concomitant]
     Indication: DEMENTIA
  5. DOCUSATE SODIUM [Concomitant]
     Indication: CONSTIPATION
     Dosage: 100 MG, 2X/DAY
     Route: 048
  6. OMEPRAZOLE [Concomitant]
     Indication: GASTROOESOPHAGEAL REFLUX DISEASE
     Dosage: 20 MG, DAILY
     Route: 048
  7. LEVOTHYROXINE [Concomitant]
     Indication: HYPOTHYROIDISM
     Dosage: 150 UG, DAILY
     Route: 048
  8. ROPINIROLE [Concomitant]
     Indication: RESTLESS LEGS SYNDROME
     Dosage: 1.0 MG, DAILY
     Route: 048
  9. ZOLPIDEM [Concomitant]
     Indication: INSOMNIA
     Dosage: 5.0 MG, DAILY
     Route: 048
  10. CYCLOBENZAPRINE [Concomitant]
     Indication: MUSCLE RELAXANT THERAPY
     Dosage: 10 MG, DAILY
     Route: 048
  11. ACETYLSALICYLIC ACID [Concomitant]
     Indication: ANTICOAGULANT THERAPY
     Dosage: 81 MG, DAILY
     Route: 048
  12. MONTELUKAST SODIUM [Concomitant]
     Indication: ASTHMA
     Dosage: 10 MG, DAILY
     Route: 048
  13. LISINOPRIL [Concomitant]
     Indication: HYPERTENSION
     Dosage: 10 MG, DAILY
     Route: 048
  14. GLIMEPIRIDE [Concomitant]
     Indication: DIABETES MELLITUS
     Dosage: 4 MG, 2X/DAY
     Route: 048
  15. FUROSEMIDE [Concomitant]
     Indication: DIURETIC THERAPY
     Dosage: 40 MG, DAILY
     Route: 048
  16. EFFEXOR XR [Concomitant]
     Indication: DEPRESSION
     Dosage: 25 MG, DAILY
     Route: 048
  17. ALPRAZOLAM [Concomitant]
     Indication: ANXIOLYTIC THERAPY
     Dosage: 0.5 MG, 2X/DAY
     Route: 048
  18. VITAMIN B6 [Concomitant]
     Dosage: 100 MG, DAILY
     Route: 048
  19. OXYCODONE [Concomitant]
     Indication: PAIN
     Dosage: 20 MG, ONE IN EVERY TWELVE HOURS
     Route: 048
  20. LANTUS [Concomitant]
     Indication: DIABETES MELLITUS
     Dosage: 100 ML AND 62 UNITS TWO TIMES A DAY
  21. LORATADINE [Concomitant]
     Indication: HYPERSENSITIVITY
     Dosage: 10 MG, DAILY
     Route: 048
  22. PREMARIN [Concomitant]
     Indication: OESTROGEN THERAPY
     Dosage: 1.25 MG, DAILY
     Route: 048
  23. TRICOR [Concomitant]
     Indication: LOW DENSITY LIPOPROTEIN INCREASED
     Dosage: 145 MG, DAILY
     Route: 048
  24. TRICOR [Concomitant]
     Indication: HIGH DENSITY LIPOPROTEIN DECREASED
  25. LIPITOR [Concomitant]
     Indication: BLOOD CHOLESTEROL INCREASED
     Dosage: 10 MG, DALIY
     Route: 048
  26. VESICARE [Concomitant]
     Indication: HYPERTONIC BLADDER
     Dosage: 5 MG, DAILY
     Route: 048

REACTIONS (1)
  - DRUG INEFFECTIVE [None]
